FAERS Safety Report 10252820 (Version 1)
Quarter: 2014Q2

REPORT INFORMATION
  Report Type: Spontaneous
  Country: US (occurrence: US)
  Receive Date: 20140623
  Receipt Date: 20140623
  Transmission Date: 20141212
  Serious: No
  Sender: FDA-Public Use
  Company Number: US-PFIZER INC-2014171874

PATIENT
  Age: 38 Year
  Sex: Female
  Weight: 71.66 kg

DRUGS (4)
  1. NEURONTIN [Suspect]
     Indication: PHANTOM PAIN
     Dosage: UNK
  2. NEURONTIN [Suspect]
     Dosage: 900 MG, 3X/DAY
  3. METOPROLOL [Concomitant]
     Indication: HYPERTENSION
     Dosage: 100 MG, DAILY
  4. LISINOPRIL W/HYDROCHLOROTHIAZIDE [Concomitant]
     Indication: HYPERTENSION
     Dosage: [HYDROCHLOROTHIAZIDE 20 MG]/[LISINOPRIL 12.5 MG], DAILY

REACTIONS (1)
  - Conjunctivitis [Unknown]
